FAERS Safety Report 14120139 (Version 2)
Quarter: 2017Q4

REPORT INFORMATION
  Report Type: Report from Study
  Country: US (occurrence: US)
  Receive Date: 20171024
  Receipt Date: 20171215
  Transmission Date: 20180321
  Serious: Yes (Other)
  Sender: FDA-Public Use
  Company Number: US-AMGEN-USASL2017159533

PATIENT
  Sex: Male

DRUGS (1)
  1. ENBREL [Suspect]
     Active Substance: ETANERCEPT
     Indication: RHEUMATOID ARTHRITIS
     Dosage: UNK
     Route: 065

REACTIONS (8)
  - Heart valve incompetence [Unknown]
  - Renal pain [Unknown]
  - Diarrhoea [Unknown]
  - Pharyngeal oedema [Unknown]
  - Sinus disorder [Unknown]
  - Cough [Not Recovered/Not Resolved]
  - Feeling hot [Unknown]
  - Headache [Unknown]
